FAERS Safety Report 4303959-6 (Version None)
Quarter: 2004Q1

REPORT INFORMATION
  Report Type: 
  Country: None (occurrence: None)
  Receive Date: 20040225
  Receipt Date: 20040216
  Transmission Date: 20041129
  Serious: Yes (Hospitalization)
  Sender: FDA-Public Use
  Company Number: CH-ROCHE-359012

PATIENT
  Age: 21 Year
  Sex: Female

DRUGS (2)
  1. ISOTRETINOIN [Suspect]
     Indication: ACNE
     Route: 065
     Dates: start: 20031015
  2. DIANE 35 [Concomitant]

REACTIONS (5)
  - ILL-DEFINED DISORDER [None]
  - MIGRAINE [None]
  - MONOPLEGIA [None]
  - PARALYSIS [None]
  - SPEECH DISORDER [None]
